FAERS Safety Report 7502512-0 (Version None)
Quarter: 2011Q2

REPORT INFORMATION
  Report Type: 
  Country: None (occurrence: None)
  Receive Date: 20110517
  Receipt Date: 20110506
  Transmission Date: 20111010
  Serious: Yes (Hospitalization)
  Sender: FDA-Public Use
  Company Number: ACO_24007_2011

PATIENT
  Age: 37 Year
  Sex: Male

DRUGS (9)
  1. OXYCODONE HCL [Concomitant]
  2. PROTONIX (PANTOPRAZOLE SODIUM SESQUIHYDRATE) [Concomitant]
  3. ZANAFLEX [Suspect]
     Indication: PRODUCT USED FOR UNKNOWN INDICATION
     Dosage: 4 MG,BID
  4. ROXICODONE [Concomitant]
  5. NEURONTIN [Concomitant]
  6. LOPRESSOR [Concomitant]
  7. ASPIRIN [Concomitant]
  8. AMPYRA [Suspect]
     Indication: PRODUCT USED FOR UNKNOWN INDICATION
     Dosage: 10 MG, Q 12 HRS, ORAL
     Route: 048
  9. LISINOPRIL [Concomitant]

REACTIONS (1)
  - MULTIPLE SCLEROSIS RELAPSE [None]
